FAERS Safety Report 10414054 (Version 1)
Quarter: 2014Q3

REPORT INFORMATION
  Report Type: Spontaneous
  Country: IT (occurrence: FR)
  Receive Date: 20140827
  Receipt Date: 20140827
  Transmission Date: 20150326
  Serious: Yes (Life-Threatening)
  Sender: FDA-Public Use
  Company Number: FR-FRI-1000070162

PATIENT
  Age: 87 Year
  Sex: Female

DRUGS (15)
  1. DIGOXINE [Suspect]
     Active Substance: DIGOXIN
     Indication: ATRIAL FIBRILLATION
     Dosage: 0.25 MG
     Route: 048
     Dates: start: 20140624, end: 20140713
  2. APIDRA [Concomitant]
     Active Substance: INSULIN GLULISINE
  3. LAROXYL [Concomitant]
     Active Substance: AMITRIPTYLINE
  4. LANTUS [Concomitant]
     Active Substance: INSULIN GLARGINE
  5. OMEPRAZOLE. [Concomitant]
     Active Substance: OMEPRAZOLE
  6. DIFFU K [Suspect]
     Active Substance: POTASSIUM CHLORIDE
     Route: 048
  7. XARELTO [Concomitant]
     Active Substance: RIVAROXABAN
  8. TRANSIPEG [Concomitant]
     Active Substance: POLYETHYLENE GLYCOL 3350
  9. NEBIVOLOL [Suspect]
     Active Substance: NEBIVOLOL
     Dosage: 7.5 MG
     Route: 048
     Dates: end: 20140713
  10. TAHOR [Concomitant]
     Active Substance: ATORVASTATIN CALCIUM
  11. SERESTA [Concomitant]
     Active Substance: OXAZEPAM
  12. IMOVANE [Concomitant]
     Active Substance: ZOPICLONE
  13. CORDARONE [Suspect]
     Active Substance: AMIODARONE HYDROCHLORIDE
     Dosage: 200 MG
     Route: 048
     Dates: end: 20140713
  14. LASILIX [Concomitant]
     Active Substance: FUROSEMIDE
  15. TAREG [Concomitant]
     Active Substance: VALSARTAN

REACTIONS (3)
  - Renal failure acute [Recovering/Resolving]
  - Bradyarrhythmia [Recovered/Resolved]
  - Cardiogenic shock [Recovered/Resolved]

NARRATIVE: CASE EVENT DATE: 20140713
